FAERS Safety Report 6086584-9 (Version None)
Quarter: 2009Q1

REPORT INFORMATION
  Report Type: 
  Country: None (occurrence: None)
  Receive Date: 20090217
  Receipt Date: 20090202
  Transmission Date: 20090719
  Serious: Yes (Death)
  Sender: FDA-Public Use
  Company Number: CHPA2009US01906

PATIENT

DRUGS (2)
  1. DIPHENHYDRAMINE HCL [Suspect]
  2. HYDROMORPHONE HCL [Suspect]

REACTIONS (1)
  - DEATH [None]
